FAERS Safety Report 10064234 (Version 3)
Quarter: 2014Q3

REPORT INFORMATION
  Report Type: Report from Study
  Country: FR (occurrence: FR)
  Receive Date: 20140408
  Receipt Date: 20140731
  Transmission Date: 20150326
  Serious: Yes (Death)
  Sender: FDA-Public Use
  Company Number: FR-ROCHE-1377634

PATIENT
  Age: 45 Year
  Sex: Female

DRUGS (2)
  1. ZELBORAF [Suspect]
     Active Substance: VEMURAFENIB
     Indication: MALIGNANT MELANOMA
     Dosage: 3 IN MORNING AND 3 IN EVENING
     Route: 048
     Dates: start: 201310, end: 201403
  2. ZELBORAF [Suspect]
     Active Substance: VEMURAFENIB
     Dosage: 4 DF IN MORNING AND 4 DF IN EVENING
     Route: 048

REACTIONS (1)
  - Disease progression [Fatal]
